FAERS Safety Report 24572532 (Version 1)
Quarter: 2024Q4

REPORT INFORMATION
  Report Type: Spontaneous
  Country: IN (occurrence: IN)
  Receive Date: 20241101
  Receipt Date: 20241101
  Transmission Date: 20250115
  Serious: Yes (Other)
  Sender: TORRENT PHARMA INC.
  Company Number: IN-MLMSERVICE-20241015-PI227707-00285-3

PATIENT
  Age: 32 Year
  Sex: Male

DRUGS (3)
  1. RISPERIDONE [Suspect]
     Active Substance: RISPERIDONE
     Indication: Psychotic symptom
     Route: 065
  2. TRIHEXYPHENIDYL [Suspect]
     Active Substance: TRIHEXYPHENIDYL
     Indication: Psychotic symptom
     Route: 065
  3. Naloxone / Buprenorphine [Concomitant]
     Indication: Product used for unknown indication
     Dosage: NALOXONE 0.5 MG PLUS BUPRENORPHINE 2 MG
     Route: 065

REACTIONS (6)
  - Muscle rigidity [Recovering/Resolving]
  - Salivary hypersecretion [Recovering/Resolving]
  - Tremor [Recovering/Resolving]
  - Dysarthria [Recovering/Resolving]
  - Consciousness fluctuating [Recovering/Resolving]
  - Extrapyramidal disorder [Recovering/Resolving]
